FAERS Safety Report 8413737-4 (Version None)
Quarter: 2012Q2

REPORT INFORMATION
  Report Type: 
  Country: None (occurrence: None)
  Receive Date: 20120605
  Receipt Date: 20120523
  Transmission Date: 20120825
  Serious: Yes (Death)
  Sender: FDA-Public Use
  Company Number: IT-CELGENEUS-083-21880-11113938

PATIENT
  Sex: Male

DRUGS (2)
  1. REVLIMID [Suspect]
     Indication: NON-HODGKIN'S LYMPHOMA
     Dosage: 25 MILLIGRAM
     Route: 048
     Dates: start: 20091126, end: 20091202
  2. DEXAMETHASONE [Concomitant]
     Indication: NON-HODGKIN'S LYMPHOMA
     Route: 065

REACTIONS (1)
  - NON-HODGKIN'S LYMPHOMA [None]
